FAERS Safety Report 19692294 (Version 2)
Quarter: 2021Q3

REPORT INFORMATION
  Report Type: Spontaneous
  Country: GB (occurrence: GB)
  Receive Date: 20210812
  Receipt Date: 20210924
  Transmission Date: 20211014
  Serious: Yes (Hospitalization, Other)
  Sender: FDA-Public Use
  Company Number: GB-SA-2021SA245469

PATIENT
  Age: 27 Year
  Sex: Female

DRUGS (2)
  1. CEREZYME [Suspect]
     Active Substance: IMIGLUCERASE
     Indication: GAUCHER^S DISEASE
     Dosage: 5 DF, QOW
     Route: 042
     Dates: start: 202104, end: 2021
  2. CEREZYME [Suspect]
     Active Substance: IMIGLUCERASE
     Dosage: 2000 IU, QOW
     Route: 042

REACTIONS (3)
  - Oropharyngeal pain [Unknown]
  - Gastric infection [Unknown]
  - Hospitalisation [Unknown]

NARRATIVE: CASE EVENT DATE: 2021
